FAERS Safety Report 17311411 (Version 1)
Quarter: 2020Q1

REPORT INFORMATION
  Report Type: Spontaneous
  Country: US (occurrence: US)
  Receive Date: 20200123
  Receipt Date: 20200123
  Transmission Date: 20200409
  Serious: No
  Sender: FDA-Public Use
  Company Number: US-ROCHE-2403544

PATIENT
  Age: 98 Year
  Sex: Female

DRUGS (2)
  1. RITUXAN [Suspect]
     Active Substance: RITUXIMAB
     Indication: B-CELL LYMPHOMA
     Route: 042
     Dates: start: 20190310
  2. IDELALISIB [Suspect]
     Active Substance: IDELALISIB
     Indication: B-CELL LYMPHOMA
     Route: 048

REACTIONS (6)
  - Decreased appetite [Unknown]
  - Fatigue [Unknown]
  - Blood pressure increased [Unknown]
  - Somnolence [Unknown]
  - Insomnia [Unknown]
  - Fall [Unknown]
